FAERS Safety Report 24673416 (Version 1)
Quarter: 2024Q4

REPORT INFORMATION
  Report Type: Spontaneous
  Country: FR (occurrence: FR)
  Receive Date: 20241128
  Receipt Date: 20241128
  Transmission Date: 20250115
  Serious: Yes (Disabling)
  Sender: AMGEN
  Company Number: FR-AMGEN-FRASP2024229205

PATIENT
  Age: 62 Year
  Sex: Male
  Weight: 84 kg

DRUGS (10)
  1. TEPEZZA [Suspect]
     Active Substance: TEPROTUMUMAB-TRBW
     Indication: Endocrine ophthalmopathy
     Dosage: 10 MILLIGRAM/KILOGRAM, Q3WK
     Route: 040
     Dates: start: 20240110
  2. TEPEZZA [Suspect]
     Active Substance: TEPROTUMUMAB-TRBW
     Dosage: 1700 MILLIGRAM,  (20 MG/KG) 2ND COURSE OF TEPEZZA
     Route: 040
     Dates: start: 20240130
  3. TEPEZZA [Suspect]
     Active Substance: TEPROTUMUMAB-TRBW
     Dosage: 1700 MILLIGRAM (20 MG/KG) 3RD COURSE OF TEPEZZA
     Route: 040
     Dates: start: 20240220
  4. TEPEZZA [Suspect]
     Active Substance: TEPROTUMUMAB-TRBW
     Dosage: 1700 MILLIGRAM (20 MG/KG) 4TH COURSE OF TEPEZZA
     Route: 040
     Dates: start: 20240313
  5. TEPEZZA [Suspect]
     Active Substance: TEPROTUMUMAB-TRBW
     Dosage: 1700 MILLIGRAM (20 MG/KG) 5TH COURSE OF TEPEZZA
     Route: 040
     Dates: start: 20240402
  6. TEPEZZA [Suspect]
     Active Substance: TEPROTUMUMAB-TRBW
     Dosage: 1700 MILLIGRAM (20 MG/KG) 6TH COURSE OF TEPEZZA
     Route: 040
     Dates: start: 20240423, end: 2024
  7. CARBIMAZOLE [Concomitant]
     Active Substance: CARBIMAZOLE
     Dosage: UNK 5MG/DAY AND 10 MG/DAY ALTERNATELY (DECREASED SINCE LAST INFUSION)
     Route: 065
  8. SIMBRINZA [Concomitant]
     Active Substance: BRIMONIDINE TARTRATE\BRINZOLAMIDE
     Dosage: 1 DROP, BID
     Route: 065
  9. BIMATOPROST\TIMOLOL [Concomitant]
     Active Substance: BIMATOPROST\TIMOLOL
     Dosage: 1 DROP, QD 1 DROP EVENING IN BOTH EYES
     Route: 065
  10. VITAMIN A [Concomitant]
     Active Substance: VITAMIN A
     Dosage: 10 MILLIGRAM/KILOGRAM
     Route: 065
     Dates: start: 20240110

REACTIONS (1)
  - Eustachian tube patulous [Not Recovered/Not Resolved]

NARRATIVE: CASE EVENT DATE: 20240313
